FAERS Safety Report 20417396 (Version 1)
Quarter: 2022Q1

REPORT INFORMATION
  Report Type: Spontaneous
  Country: US (occurrence: None)
  Receive Date: 20220202
  Receipt Date: 20220202
  Transmission Date: 20220423
  Serious: Yes (Other)
  Sender: FDA-Public Use
  Company Number: None

PATIENT
  Age: 77 Year
  Sex: Male

DRUGS (1)
  1. ABIRATERONE [Suspect]
     Active Substance: ABIRATERONE
     Dosage: FREQUENCY : DAILY;?
     Route: 048
     Dates: start: 202111

REACTIONS (7)
  - Oedema peripheral [None]
  - Nausea [None]
  - Fatigue [None]
  - Hypertension [None]
  - Therapy interrupted [None]
  - Fear [None]
  - Treatment noncompliance [None]

NARRATIVE: CASE EVENT DATE: 20220202
